FAERS Safety Report 4597505-X (Version None)
Quarter: 2005Q1

REPORT INFORMATION
  Report Type: 
  Country: None (occurrence: None)
  Receive Date: 20050303
  Receipt Date: 20050222
  Transmission Date: 20050727
  Serious: Yes (Hospitalization)
  Sender: FDA-Public Use
  Company Number: PHHO2005ES03063

PATIENT
  Age: 66 Year
  Sex: Female

DRUGS (4)
  1. GLEEVEC [Suspect]
     Indication: CHRONIC MYELOID LEUKAEMIA
     Dosage: 400 MG, QD
     Route: 048
     Dates: start: 20041110, end: 20041222
  2. FUROSEMIDE [Concomitant]
  3. DARBEPOETIN ALFA [Concomitant]
  4. ALOPURINOL [Concomitant]

REACTIONS (1)
  - ANGINA PECTORIS [None]
